FAERS Safety Report 5235365-4 (Version None)
Quarter: 2007Q1

REPORT INFORMATION
  Report Type: 
  Country: None (occurrence: None)
  Receive Date: 20070212
  Receipt Date: 20070131
  Transmission Date: 20070707
  Serious: Yes (Hospitalization, Other)
  Sender: FDA-Public Use
  Company Number: GR-ELI_LILLY_AND_COMPANY-GR200702000025

PATIENT
  Age: 27 Year
  Sex: Male

DRUGS (2)
  1. ZYPREXA [Suspect]
     Dosage: 320 MG, DAILY (1/D)
     Route: 048
     Dates: start: 20070129
  2. PARACETAMOL [Concomitant]
     Dosage: UNK, UNK
     Route: 048
     Dates: start: 20070129

REACTIONS (5)
  - AGITATION [None]
  - DRUG INTERACTION [None]
  - INTENTIONAL OVERDOSE [None]
  - SEDATION [None]
  - SUICIDE ATTEMPT [None]
